FAERS Safety Report 5596342-7 (Version None)
Quarter: 2008Q1

REPORT INFORMATION
  Report Type: 
  Country: None (occurrence: None)
  Receive Date: 20080118
  Receipt Date: 20080111
  Transmission Date: 20080703
  Serious: Yes (Death, Other)
  Sender: FDA-Public Use
  Company Number: GB-MERCK-0801GBR00042

PATIENT
  Age: 66 Year
  Sex: Female

DRUGS (2)
  1. DECADRON [Suspect]
     Indication: PROPHYLAXIS
     Route: 048
  2. PHENYTOIN [Suspect]
     Indication: PROPHYLAXIS
     Route: 065

REACTIONS (2)
  - DRUG INTERACTION [None]
  - THROMBOCYTOPENIA [None]
